FAERS Safety Report 5168848-6 (Version None)
Quarter: 2006Q4

REPORT INFORMATION
  Report Type: 
  Country: None (occurrence: None)
  Receive Date: 20061205
  Receipt Date: 20061205
  Transmission Date: 20070319
  Serious: Yes (Hospitalization)
  Sender: FDA-Public Use
  Company Number: None

PATIENT
  Age: 8 Year
  Sex: Female
  Weight: 26.7622 kg

DRUGS (1)
  1. TAMIFLU [Suspect]
     Indication: INFLUENZA SEROLOGY POSITIVE
     Dosage: 60 MG 2X DAILY FOR 5 DAY PO
     Route: 048
     Dates: start: 20061017, end: 20061017

REACTIONS (6)
  - ADVERSE DRUG REACTION [None]
  - EYE DISORDER [None]
  - FEAR [None]
  - MENTAL STATUS CHANGES [None]
  - SCREAMING [None]
  - UNRESPONSIVE TO STIMULI [None]
